FAERS Safety Report 7649477-9 (Version None)
Quarter: 2011Q3

REPORT INFORMATION
  Report Type: 
  Country: None (occurrence: None)
  Receive Date: 20110727
  Receipt Date: 20110711
  Transmission Date: 20111222
  Serious: No
  Sender: FDA-Public Use
  Company Number: 2011MA008655

PATIENT
  Age: 58 Year
  Sex: Male

DRUGS (13)
  1. DIAZEPAM [Suspect]
     Indication: SEDATION
     Dosage: IV
     Route: 042
  2. DIAZEPAM [Suspect]
     Indication: PAIN
     Dosage: IV
     Route: 042
  3. NEUROLEPTIC [Suspect]
     Indication: PAIN
  4. NEUROLEPTIC [Suspect]
     Indication: SEDATION
  5. LIDOCAINE [Suspect]
     Indication: ANAESTHESIA
     Dosage: 8 ML
  6. OPIOID [Suspect]
     Indication: PAIN
  7. OPIOID [Suspect]
     Indication: SEDATION
  8. BARBITURATE [Suspect]
     Indication: PAIN
  9. BARBITURATE [Suspect]
     Indication: SEDATION
  10. THIAZIDE/POTASSIUM-SPARING DIURETIC [Concomitant]
  11. PROPRANOLOL HCL [Suspect]
     Indication: HYPERTENSION
     Dosage: 20 MG; TID
  12. HYDROXYZINE HCL [Suspect]
  13. EPINEPHRINE [Suspect]
     Indication: ANAESTHESIA
     Dosage: 0.04 MG

REACTIONS (2)
  - HEART RATE DECREASED [None]
  - HYPERTENSION [None]
